FAERS Safety Report 13403533 (Version 1)
Quarter: 2017Q2

REPORT INFORMATION
  Report Type: Spontaneous
  Country: US (occurrence: US)
  Receive Date: 20170405
  Receipt Date: 20170405
  Transmission Date: 20170830
  Serious: Yes (Hospitalization)
  Sender: FDA-Public Use
  Company Number: US-ASTRAZENECA-2017SE33982

PATIENT
  Age: 66 Year
  Sex: Female
  Weight: 81.6 kg

DRUGS (14)
  1. LANTUS [Concomitant]
     Active Substance: INSULIN GLARGINE
     Indication: TYPE 2 DIABETES MELLITUS
     Route: 058
     Dates: start: 2006
  2. POTASSIUM [Concomitant]
     Active Substance: POTASSIUM
     Indication: MINERAL SUPPLEMENTATION
     Dosage: EVERY DAY
     Route: 048
  3. BYETTA [Suspect]
     Active Substance: EXENATIDE
     Indication: TYPE 2 DIABETES MELLITUS
     Route: 058
     Dates: start: 2004
  4. ISOSORBIDE MONONITRATE. [Concomitant]
     Active Substance: ISOSORBIDE MONONITRATE
     Indication: CARDIAC DISORDER
     Route: 048
     Dates: start: 2017
  5. VITAMIN C [Concomitant]
     Active Substance: ASCORBIC ACID
     Indication: VITAMIN SUPPLEMENTATION
     Route: 048
  6. BYETTA [Suspect]
     Active Substance: EXENATIDE
     Indication: TYPE 2 DIABETES MELLITUS
     Route: 058
     Dates: start: 20170328
  7. GABAPENTIN. [Concomitant]
     Active Substance: GABAPENTIN
     Indication: NEUROPATHY PERIPHERAL
     Route: 048
     Dates: start: 2006
  8. AMLODIPINE [Concomitant]
     Active Substance: AMLODIPINE BESYLATE
     Indication: ANGINA PECTORIS
     Route: 048
     Dates: start: 2017
  9. VITAMIN B12 [Concomitant]
     Active Substance: CYANOCOBALAMIN
     Indication: VITAMIN SUPPLEMENTATION
     Dosage: EVERY DAY
     Route: 060
  10. MAGNESIUM [Concomitant]
     Active Substance: MAGNESIUM
     Indication: MINERAL SUPPLEMENTATION
     Dosage: EVERY DAY
     Route: 048
  11. ROSUVASTATIN CALCIUM. [Suspect]
     Active Substance: ROSUVASTATIN CALCIUM
     Indication: CARDIAC DISORDER
     Route: 048
     Dates: start: 2017
  12. LOMOTIL [Concomitant]
     Active Substance: ATROPINE SULFATE\DIPHENOXYLATE HYDROCHLORIDE
     Indication: DIURETIC THERAPY
     Route: 048
     Dates: start: 2006
  13. GARLIC. [Concomitant]
     Active Substance: GARLIC
     Indication: SUPPLEMENTATION THERAPY
     Route: 048
  14. ASPRIN [Concomitant]
     Active Substance: ASPIRIN
     Indication: ANTICOAGULANT THERAPY
     Route: 048
     Dates: start: 2017

REACTIONS (8)
  - Muscle spasms [Not Recovered/Not Resolved]
  - Glycosylated haemoglobin increased [Unknown]
  - Coronary artery occlusion [Unknown]
  - Blood potassium decreased [Not Recovered/Not Resolved]
  - Intentional product misuse [Unknown]
  - Laboratory test abnormal [Unknown]
  - Blood cholesterol increased [Unknown]
  - Myocardial infarction [Unknown]

NARRATIVE: CASE EVENT DATE: 2006
